FAERS Safety Report 16124075 (Version 1)
Quarter: 2019Q1

REPORT INFORMATION
  Report Type: Spontaneous
  Country: GB (occurrence: FR)
  Receive Date: 20190327
  Receipt Date: 20190327
  Transmission Date: 20190418
  Serious: Yes (Death)
  Sender: FDA-Public Use
  Company Number: FR-FRESENIUS KABI-FK201903002

PATIENT
  Age: 55 Year
  Sex: Male

DRUGS (1)
  1. LINEZOLID (MANUFACTURER UNKNOWN) [Suspect]
     Active Substance: LINEZOLID
     Indication: LUNG DISORDER
     Route: 048
     Dates: start: 20180704, end: 20180719

REACTIONS (1)
  - Hyperlactacidaemia [Fatal]

NARRATIVE: CASE EVENT DATE: 20180719
